FAERS Safety Report 7921197-2 (Version None)
Quarter: 2011Q4

REPORT INFORMATION
  Report Type: 
  Country: None (occurrence: None)
  Receive Date: 20111117
  Receipt Date: 20111107
  Transmission Date: 20120403
  Serious: Yes (Hospitalization, Other)
  Sender: FDA-Public Use
  Company Number: US-BAYER-2011-055463

PATIENT
  Age: 25 Year
  Sex: Female
  Weight: 82 kg

DRUGS (2)
  1. RANITIDINE [Concomitant]
     Dosage: 150 MG, UNK
     Dates: start: 20090414
  2. YAZ [Suspect]
     Indication: ORAL CONTRACEPTION
     Dosage: UNK
     Dates: start: 20090101, end: 20090101

REACTIONS (4)
  - PAIN [None]
  - PAPILLOEDEMA [None]
  - RETINAL VASCULAR THROMBOSIS [None]
  - VISUAL ACUITY REDUCED [None]
